FAERS Safety Report 4708620-1 (Version None)
Quarter: 2005Q3

REPORT INFORMATION
  Report Type: 
  Country: None (occurrence: None)
  Receive Date: 20050707
  Receipt Date: 20050531
  Transmission Date: 20060218
  Serious: Yes (Hospitalization)
  Sender: FDA-Public Use
  Company Number: 200511840FR

PATIENT
  Sex: Male

DRUGS (6)
  1. FLAGYL [Suspect]
     Indication: BACTERIAL INFECTION
     Route: 048
     Dates: start: 20050402, end: 20050404
  2. SPASFON [Suspect]
     Indication: ABDOMINAL PAIN
     Route: 048
     Dates: start: 20050330, end: 20050406
  3. CIFLOX [Suspect]
     Indication: BACTERIAL INFECTION
     Route: 048
     Dates: start: 20050402, end: 20050404
  4. MOTILYO [Suspect]
     Indication: ABDOMINAL PAIN
     Route: 048
     Dates: start: 20050330, end: 20050406
  5. DOLIPRANE [Concomitant]
     Indication: HEADACHE
     Route: 048
     Dates: start: 20050330
  6. DOLIPRANE [Concomitant]
     Indication: PYREXIA
     Route: 048
     Dates: start: 20050330

REACTIONS (12)
  - ABDOMINAL PAIN [None]
  - ALANINE AMINOTRANSFERASE INCREASED [None]
  - ASPARTATE AMINOTRANSFERASE INCREASED [None]
  - C-REACTIVE PROTEIN INCREASED [None]
  - FLATULENCE [None]
  - GALLBLADDER POLYP [None]
  - GAMMA-GLUTAMYLTRANSFERASE INCREASED [None]
  - GASTROINTESTINAL INFECTION [None]
  - HEPATOCELLULAR DAMAGE [None]
  - JAUNDICE [None]
  - SUBILEUS [None]
  - VOMITING [None]
